FAERS Safety Report 25261721 (Version 3)
Quarter: 2025Q4

REPORT INFORMATION
  Report Type: Report from Study
  Country: KR (occurrence: KR)
  Receive Date: 20250502
  Receipt Date: 20251203
  Transmission Date: 20260118
  Serious: Yes (Death, Hospitalization, Other)
  Sender: ABBVIE
  Company Number: KR-ABBVIE-6143439

PATIENT
  Age: 86 Year
  Sex: Female
  Weight: 60 kg

DRUGS (15)
  1. VENCLEXTA [Suspect]
     Active Substance: VENETOCLAX
     Indication: Acute myeloid leukaemia
     Route: 048
     Dates: start: 20250208, end: 20250214
  2. VENCLEXTA [Suspect]
     Active Substance: VENETOCLAX
     Indication: Acute myeloid leukaemia
     Route: 048
     Dates: start: 20250206, end: 20250206
  3. VENCLEXTA [Suspect]
     Active Substance: VENETOCLAX
     Indication: Acute myeloid leukaemia
     Route: 048
     Dates: start: 20250207, end: 20250207
  4. VENCLEXTA [Suspect]
     Active Substance: VENETOCLAX
     Indication: Acute myeloid leukaemia
     Route: 048
     Dates: start: 20250401, end: 20250407
  5. VENCLEXTA [Suspect]
     Active Substance: VENETOCLAX
     Indication: Acute myeloid leukaemia
     Route: 048
     Dates: start: 20250408, end: 20250423
  6. Azalid [Concomitant]
     Indication: Acute myeloid leukaemia
     Dosage: 150 MG
     Route: 042
     Dates: start: 20250407, end: 20250409
  7. Azalid [Concomitant]
     Indication: Acute myeloid leukaemia
     Dosage: 150MG; EVERY 4WEEKS FOR 7DAYS
     Route: 042
     Dates: start: 20250401, end: 20250404
  8. NEXIUM [Concomitant]
     Active Substance: ESOMEPRAZOLE MAGNESIUM
     Indication: Prophylaxis against gastrointestinal ulcer
     Route: 042
     Dates: start: 20250216, end: 20250219
  9. AMLODIPINE BESYLATE [Concomitant]
     Active Substance: AMLODIPINE BESYLATE
     Indication: Hypertension
     Dosage: 5MG
     Route: 048
     Dates: start: 2021
  10. DACOGEN [Concomitant]
     Active Substance: DECITABINE
     Indication: Acute myeloid leukaemia
     Dosage: EVERY 4 WEEKS FOR 5 DAYS
     Route: 042
     Dates: start: 20250206, end: 20250210
  11. Peniramin [Concomitant]
     Indication: Prophylaxis
     Route: 042
     Dates: start: 20250215, end: 20250217
  12. LASIX [Concomitant]
     Active Substance: FUROSEMIDE
     Indication: Lymphoedema
     Route: 048
     Dates: start: 2020
  13. Cvastin [Concomitant]
     Indication: Dyslipidaemia
     Dosage: 5MG
     Route: 048
     Dates: start: 2021
  14. Cosca [Concomitant]
     Indication: Hypertension
     Dosage: 25MG
     Route: 048
     Dates: start: 2021
  15. MEGACE [Concomitant]
     Active Substance: MEGESTROL ACETATE
     Indication: Prophylaxis
     Dosage: SUSPENSION
     Route: 048
     Dates: start: 20250221

REACTIONS (2)
  - Septic shock [Fatal]
  - Sepsis [Recovered/Resolved]

NARRATIVE: CASE EVENT DATE: 20250214
